FAERS Safety Report 5213339-7 (Version None)
Quarter: 2007Q1

REPORT INFORMATION
  Report Type: 
  Country: None (occurrence: None)
  Receive Date: 20070119
  Receipt Date: 20060502
  Transmission Date: 20070707
  Serious: No
  Sender: FDA-Public Use
  Company Number: US-GLAXOSMITHKLINE-A0604078A

PATIENT
  Age: 48 Year
  Sex: Male

DRUGS (3)
  1. ARIXTRA [Suspect]
     Dosage: 2.5MG PER DAY
     Route: 058
     Dates: start: 20060420
  2. LORTAB [Concomitant]
  3. CEPHALEXIN [Concomitant]

REACTIONS (3)
  - CHROMATURIA [None]
  - CONSTIPATION [None]
  - HYPERHIDROSIS [None]
